FAERS Safety Report 7961899-5 (Version None)
Quarter: 2011Q4

REPORT INFORMATION
  Report Type: 
  Country: None (occurrence: None)
  Receive Date: 20111202
  Receipt Date: 20111202
  Transmission Date: 20120403
  Serious: Yes (Death)
  Sender: FDA-Public Use
  Company Number: None

PATIENT
  Age: 74 Year
  Sex: Male
  Weight: 65.7716 kg

DRUGS (1)
  1. YERVOY [Suspect]
     Dosage: ONLY TOOK DOSE 1 X  I.V.
     Route: 042
     Dates: start: 20110915

REACTIONS (3)
  - FALL [None]
  - UNEVALUABLE EVENT [None]
  - RESUSCITATION [None]
